FAERS Safety Report 9492053 (Version 1)
Quarter: 2013Q3

REPORT INFORMATION
  Report Type: Spontaneous
  Country: US (occurrence: US)
  Receive Date: 20130830
  Receipt Date: 20130830
  Transmission Date: 20140515
  Serious: No
  Sender: FDA-Public Use
  Company Number: US-TARO-2012P1052216

PATIENT
  Age: 71 Year
  Sex: Male
  Weight: 70.31 kg

DRUGS (7)
  1. METRONIDAZOLE GEL USP 0.75% [Suspect]
     Indication: ROSACEA
     Route: 061
     Dates: start: 20120628, end: 201207
  2. CARVEDILOL [Concomitant]
  3. METFORMIN [Concomitant]
  4. ZOCOR [Concomitant]
  5. DIGOXIN [Concomitant]
  6. GABAPENTIN [Concomitant]
  7. ASPIRIN [Concomitant]

REACTIONS (2)
  - Rosacea [Recovered/Resolved]
  - Drug ineffective [Not Recovered/Not Resolved]
